FAERS Safety Report 4811447-3 (Version None)
Quarter: 2005Q4

REPORT INFORMATION
  Report Type: 
  Country: None (occurrence: None)
  Receive Date: 20051025
  Receipt Date: 20051025
  Transmission Date: 20060501
  Serious: No
  Sender: FDA-Public Use
  Company Number: None

PATIENT
  Age: 49 Year
  Sex: Male

DRUGS (1)
  1. IMMUNE GLOBULIN (HUMAN) [Suspect]

REACTIONS (9)
  - ARTHRALGIA [None]
  - ARTHRITIS [None]
  - FATIGUE [None]
  - HEADACHE [None]
  - IMMUNODEFICIENCY [None]
  - IMMUNOGLOBULINS DECREASED [None]
  - INFECTION [None]
  - LYMPHOPENIA [None]
  - MYALGIA [None]
